FAERS Safety Report 17106044 (Version 2)
Quarter: 2019Q4

REPORT INFORMATION
  Report Type: Spontaneous
  Country: GB (occurrence: GB)
  Receive Date: 20191203
  Receipt Date: 20191209
  Transmission Date: 20200122
  Serious: Yes (Other)
  Sender: FDA-Public Use
  Company Number: GB-SA-2019SA328671

PATIENT
  Age: 55 Year
  Sex: Male

DRUGS (20)
  1. PREDNISOLONE. [Suspect]
     Active Substance: PREDNISOLONE
     Indication: IMMUNOSUPPRESSION
     Dosage: 5 MG QD
  2. FOSCARNET [Suspect]
     Active Substance: FOSCARNET
     Indication: PNEUMONIA CYTOMEGALOVIRAL
     Dosage: 2.4 MG; 2.4 MG/0.1 ML INJECTION WAS INITIATED IN THE RIGHT THEN THE LEFT EYE AND REPEATED AT 1-2-WEE
     Route: 031
  3. LEFLUNOMIDE. [Suspect]
     Active Substance: LEFLUNOMIDE
     Indication: CYTOMEGALOVIRUS INFECTION
     Dosage: LONG-TERM ANTIVIRAL THERAPY
     Route: 062
  4. LEFLUNOMIDE. [Suspect]
     Active Substance: LEFLUNOMIDE
     Indication: PNEUMONIA CYTOMEGALOVIRAL
  5. CICLOSPORIN [Suspect]
     Active Substance: CYCLOSPORINE
     Indication: IMMUNOSUPPRESSION
  6. VALGANCICLOVIR HYDROCHLORIDE. [Suspect]
     Active Substance: VALGANCICLOVIR HYDROCHLORIDE
     Indication: CYTOMEGALOVIRUS INFECTION
     Dosage: 450 MG, QD
     Route: 048
  7. ANTI-THYMOCYTE GLOBULIN (RABBIT) NOS [Suspect]
     Active Substance: LAPINE T-LYMPHOCYTE IMMUNE GLOBULIN
     Indication: IMMUNOSUPPRESSION
     Dosage: 1.5 MG/KG FOR 3 DAYS INDUCTION
  8. IMMUNOGLOBULIN CYTOMEGALOVIRUS [Suspect]
     Active Substance: HUMAN CYTOMEGALOVIRUS IMMUNE GLOBULIN
     Indication: CYTOMEGALOVIRUS CHORIORETINITIS
     Dosage: 2 MG/KG, QW
  9. IMMUNOGLOBULIN CYTOMEGALOVIRUS [Suspect]
     Active Substance: HUMAN CYTOMEGALOVIRUS IMMUNE GLOBULIN
     Indication: PNEUMONIA CYTOMEGALOVIRAL
     Dosage: UNK UNK
  10. SIROLIMUS. [Suspect]
     Active Substance: SIROLIMUS
     Indication: ANTIVIRAL TREATMENT
     Dosage: 1.5 MG, QD
  11. TACROLIMUS. [Suspect]
     Active Substance: TACROLIMUS
     Indication: IMMUNOSUPPRESSION
     Dosage: 2 MG, BID
     Route: 048
  12. PREDNISOLONE. [Suspect]
     Active Substance: PREDNISOLONE
     Indication: ANTIVIRAL TREATMENT
     Dosage: 8 MG QD
  13. GANCICLOVIR. [Suspect]
     Active Substance: GANCICLOVIR
     Indication: CYTOMEGALOVIRUS CHORIORETINITIS
     Dosage: UNK
     Route: 042
  14. GANCICLOVIR. [Suspect]
     Active Substance: GANCICLOVIR
     Indication: CYTOMEGALOVIRUS VIRAEMIA
  15. FOSCARNET [Suspect]
     Active Substance: FOSCARNET
     Indication: CYTOMEGALOVIRUS INFECTION
     Dosage: UNK
     Route: 042
  16. AZATHIOPRINE. [Suspect]
     Active Substance: AZATHIOPRINE
     Indication: IMMUNOSUPPRESSION
  17. VALGANCICLOVIR HYDROCHLORIDE. [Suspect]
     Active Substance: VALGANCICLOVIR HYDROCHLORIDE
     Indication: ANTIVIRAL PROPHYLAXIS
     Dosage: UNK
     Route: 048
  18. IMMUNOGLOBULIN CYTOMEGALOVIRUS [Suspect]
     Active Substance: HUMAN CYTOMEGALOVIRUS IMMUNE GLOBULIN
     Indication: CYTOMEGALOVIRUS INFECTION
     Dosage: UNK UNK, QW
     Route: 062
  19. METHYLPREDNISOLONE. [Concomitant]
     Active Substance: METHYLPREDNISOLONE
     Indication: TRANSPLANT REJECTION
     Route: 042
  20. PREDNISOLONE. [Suspect]
     Active Substance: PREDNISOLONE
     Dosage: 15 MG, QD

REACTIONS (14)
  - Visual impairment [Recovered/Resolved]
  - Retinal detachment [Recovered/Resolved]
  - Drug ineffective [Unknown]
  - Vitreous floaters [Recovered/Resolved]
  - Cytomegalovirus chorioretinitis [Recovered/Resolved]
  - Iridocyclitis [Recovered/Resolved]
  - Vitritis infective [Recovered/Resolved]
  - Macular detachment [Recovered/Resolved]
  - Drug resistance [Recovered/Resolved]
  - Pneumonia cytomegaloviral [Recovered/Resolved]
  - Cytomegalovirus infection [Recovered/Resolved]
  - Chorioretinal scar [Recovered/Resolved]
  - Necrotising retinitis [Recovered/Resolved]
  - Off label use [Unknown]
